FAERS Safety Report 14790505 (Version 1)
Quarter: 2018Q2

REPORT INFORMATION
  Report Type: Spontaneous
  Country: FR (occurrence: FR)
  Receive Date: 20180423
  Receipt Date: 20180423
  Transmission Date: 20180711
  Serious: Yes (Death, Hospitalization)
  Sender: FDA-Public Use
  Company Number: FR-MYLANLABS-2018M1024749

PATIENT
  Age: 77 Year
  Sex: Male

DRUGS (3)
  1. OXACILLIN [Concomitant]
     Active Substance: OXACILLIN SODIUM
     Indication: STAPHYLOCOCCAL INFECTION
     Route: 065
  2. RIFAMPICIN [Suspect]
     Active Substance: RIFAMPIN
     Indication: STAPHYLOCOCCAL INFECTION
     Route: 065
  3. CEFAZOLIN [Suspect]
     Active Substance: CEFAZOLIN
     Indication: STAPHYLOCOCCAL INFECTION
     Route: 042

REACTIONS (6)
  - Hypovitaminosis [Fatal]
  - Shock haemorrhagic [Fatal]
  - Vitamin K deficiency [Fatal]
  - Cardiac tamponade [Fatal]
  - Cardiogenic shock [Fatal]
  - Hypoprothrombinaemia [Fatal]
